FAERS Safety Report 15501076 (Version 1)
Quarter: 2018Q4

REPORT INFORMATION
  Report Type: Report from Study
  Country: CA (occurrence: CA)
  Receive Date: 20181015
  Receipt Date: 20181015
  Transmission Date: 20190205
  Serious: Yes (Hospitalization, Other)
  Sender: FDA-Public Use
  Company Number: CA-JNJFOC-20181015378

PATIENT
  Sex: Male
  Weight: 86 kg

DRUGS (1)
  1. STELARA [Suspect]
     Active Substance: USTEKINUMAB
     Indication: PSORIASIS
     Dosage: STRENGTH = 45 MG
     Route: 058
     Dates: start: 20100104

REACTIONS (5)
  - Aneurysm [Recovering/Resolving]
  - Transient ischaemic attack [Unknown]
  - Incorrect dose administered [Unknown]
  - Off label use [Unknown]
  - Psoriasis [Unknown]
